FAERS Safety Report 14783262 (Version 1)
Quarter: 2018Q2

REPORT INFORMATION
  Report Type: Spontaneous
  Country: FR (occurrence: FR)
  Receive Date: 20180420
  Receipt Date: 20180420
  Transmission Date: 20180711
  Serious: Yes (Death, Hospitalization)
  Sender: FDA-Public Use
  Company Number: FR-CIPLA LTD.-2018FR15908

PATIENT

DRUGS (4)
  1. LEVOFLOXACIN. [Suspect]
     Active Substance: LEVOFLOXACIN
     Indication: PRODUCT USED FOR UNKNOWN INDICATION
     Dosage: 1000 MG PER DAY
     Route: 048
     Dates: start: 20170714
  2. AUGMENTIN [Interacting]
     Active Substance: AMOXICILLIN\CLAVULANATE POTASSIUM
     Indication: PLEURAL EFFUSION
     Dosage: 3 G, PER DAY
     Route: 048
     Dates: start: 20170712, end: 20170714
  3. PREVISCAN                          /00789001/ [Interacting]
     Active Substance: FLUINDIONE
     Indication: PARADOXICAL EMBOLISM
     Dosage: 20 MG, PER DAY
     Route: 048
     Dates: start: 20170712
  4. OROKEN [Interacting]
     Active Substance: CEFIXIME
     Indication: PRODUCT USED FOR UNKNOWN INDICATION
     Dosage: 400 MG, PER DAY
     Route: 048
     Dates: start: 20170714

REACTIONS (1)
  - International normalised ratio increased [Recovered/Resolved]

NARRATIVE: CASE EVENT DATE: 20170720
